FAERS Safety Report 5269260-1 (Version None)
Quarter: 2007Q1

REPORT INFORMATION
  Report Type: 
  Country: None (occurrence: None)
  Receive Date: 20070319
  Receipt Date: 20070308
  Transmission Date: 20070707
  Serious: Yes (Hospitalization, Other)
  Sender: FDA-Public Use
  Company Number: US-PFIZER INC-2007018953

PATIENT
  Sex: Male
  Weight: 108.9 kg

DRUGS (10)
  1. VIAGRA [Suspect]
     Indication: ERECTILE DYSFUNCTION
  2. ZITHROMAX [Suspect]
     Indication: BRONCHITIS
  3. CARDIZEM LA [Suspect]
  4. RITALIN [Suspect]
  5. CAFFEINE [Suspect]
  6. LEVOTHYROXINE SODIUM [Concomitant]
  7. CLONAZEPAM [Concomitant]
  8. COZAAR [Concomitant]
  9. MULTI-VITAMINS [Concomitant]
  10. ACETYLSALICYLIC ACID SRT [Concomitant]

REACTIONS (13)
  - ATRIAL FIBRILLATION [None]
  - BLOOD CAFFEINE INCREASED [None]
  - BRONCHITIS [None]
  - DEHYDRATION [None]
  - DIZZINESS [None]
  - DRUG INEFFECTIVE [None]
  - DRUG WITHDRAWAL SYNDROME [None]
  - EJACULATION FAILURE [None]
  - FLUSHING [None]
  - HEART RATE DECREASED [None]
  - HEART RATE IRREGULAR [None]
  - PNEUMONIA [None]
  - UNEVALUABLE EVENT [None]
